FAERS Safety Report 9637095 (Version 2)
Quarter: 2014Q1

REPORT INFORMATION
  Report Type: Spontaneous
  Country: US (occurrence: US)
  Receive Date: 20131022
  Receipt Date: 20140219
  Transmission Date: 20141002
  Serious: Yes (Death, Hospitalization)
  Sender: FDA-Public Use
  Company Number: US-BRISTOL-MYERS SQUIBB COMPANY-19550128

PATIENT
  Age: 66 Year
  Sex: Male

DRUGS (5)
  1. BYETTA [Suspect]
     Indication: TYPE 2 DIABETES MELLITUS
     Dates: start: 20110113
  2. JANUVIA [Suspect]
     Indication: TYPE 2 DIABETES MELLITUS
     Dates: start: 20100918, end: 201209
  3. COUMADIN [Concomitant]
  4. INSULIN [Concomitant]
  5. LISINOPRIL [Concomitant]

REACTIONS (1)
  - Pancreatic carcinoma metastatic [Fatal]
